FAERS Safety Report 17419215 (Version 1)
Quarter: 2020Q1

REPORT INFORMATION
  Report Type: Report from Study
  Country: US (occurrence: US)
  Receive Date: 20200214
  Receipt Date: 20200214
  Transmission Date: 20200409
  Serious: Yes (Other)
  Sender: FDA-Public Use
  Company Number: US-ROCHE-2545493

PATIENT

DRUGS (5)
  1. EVEROLIMUS. [Suspect]
     Active Substance: EVEROLIMUS
     Indication: MALIGNANT NERVOUS SYSTEM NEOPLASM
     Dosage: DOSE LEVEL 1 (STARTING DOSE)- 4 MG/M2
     Route: 048
  2. BEVACIZUMAB. [Suspect]
     Active Substance: BEVACIZUMAB
     Indication: NEOPLASM
     Dosage: DOSE LEVEL 0- 8 MG/KG,
     Route: 042
  3. EVEROLIMUS. [Suspect]
     Active Substance: EVEROLIMUS
     Indication: NEOPLASM
     Dosage: DOSE LEVEL 0- 4 MG/M2,
     Route: 048
  4. SODIUM CHLORIDE. [Concomitant]
     Active Substance: SODIUM CHLORIDE
  5. BEVACIZUMAB. [Suspect]
     Active Substance: BEVACIZUMAB
     Indication: MALIGNANT NERVOUS SYSTEM NEOPLASM
     Dosage: DOSE LEVEL 1 (STARTING DOSE)- 10 MG/KG,
     Route: 042

REACTIONS (23)
  - Dehydration [Unknown]
  - Mucosal inflammation [Unknown]
  - Alanine aminotransferase increased [Unknown]
  - Decreased appetite [Unknown]
  - Aphasia [Unknown]
  - Lymphopenia [Unknown]
  - Platelet disorder [Unknown]
  - Ulcer [Unknown]
  - Oropharyngeal pain [Unknown]
  - White blood cell disorder [Unknown]
  - Neutropenia [Unknown]
  - Hypercholesterolaemia [Unknown]
  - Aspartate aminotransferase abnormal [Unknown]
  - Hypophosphataemia [Unknown]
  - Tumour pain [Unknown]
  - Haemoglobin abnormal [Unknown]
  - Hyponatraemia [Unknown]
  - Back pain [Unknown]
  - Pain in extremity [Unknown]
  - Arthralgia [Unknown]
  - Dermatitis acneiform [Unknown]
  - Hypokalaemia [Unknown]
  - Gait disturbance [Unknown]
